FAERS Safety Report 12183558 (Version 1)
Quarter: 2016Q1

REPORT INFORMATION
  Report Type: Spontaneous
  Country: IL (occurrence: IL)
  Receive Date: 20160316
  Receipt Date: 20160316
  Transmission Date: 20160526
  Serious: Yes (Other)
  Sender: FDA-Public Use
  Company Number: IL-EMD SERONO-8071989

PATIENT
  Age: 26 Year
  Sex: Female

DRUGS (7)
  1. OVITRELLE [Concomitant]
     Active Substance: CHORIOGONADOTROPIN ALFA
     Indication: INFERTILITY
     Dates: start: 20151022
  2. OVITRELLE [Concomitant]
     Active Substance: CHORIOGONADOTROPIN ALFA
     Dosage: 1 DOSE
     Dates: start: 20151125
  3. GONAL-F [Suspect]
     Active Substance: FOLLITROPIN
     Dosage: 8 DAYS OF DAILY DOSE OF 100IU + 3 DAYS OF DAILY DOSE OF 125IU + 4 DAYS OF DAILY DOSE OF 150IU
     Dates: start: 20151125
  4. OVITRELLE [Concomitant]
     Active Substance: CHORIOGONADOTROPIN ALFA
     Dosage: 1 DOSE
     Dates: start: 2016
  5. GONAL-F [Suspect]
     Active Substance: FOLLITROPIN
     Dosage: FOR 7 DAYS (REINTRODUCED)
     Dates: start: 20160225
  6. GONAL-F [Suspect]
     Active Substance: FOLLITROPIN
     Indication: INFERTILITY
     Dosage: FOR 10 DAYS
     Route: 058
     Dates: start: 20151022
  7. ELTROXIN [Concomitant]
     Active Substance: LEVOTHYROXINE
     Indication: HYPOTHYROIDISM
     Route: 048
     Dates: start: 2013

REACTIONS (1)
  - Hydrocephalus [Recovered/Resolved]

NARRATIVE: CASE EVENT DATE: 20151228
